FAERS Safety Report 10362085 (Version 3)
Quarter: 2015Q1

REPORT INFORMATION
  Report Type: Spontaneous
  Country: US (occurrence: US)
  Receive Date: 20140805
  Receipt Date: 20150320
  Transmission Date: 20150720
  Serious: Yes (Other)
  Sender: FDA-Public Use
  Company Number: US-BAYER-2014-114263

PATIENT
  Age: 21 Year
  Sex: Female
  Weight: 61.68 kg

DRUGS (2)
  1. VICODIN [Concomitant]
     Active Substance: ACETAMINOPHEN\HYDROCODONE BITARTRATE
  2. MIRENA [Suspect]
     Active Substance: LEVONORGESTREL
     Indication: CONTRACEPTION
     Dosage: 20 MCG/24HR, CONT
     Route: 015
     Dates: start: 200911, end: 20110719

REACTIONS (7)
  - Off label use [None]
  - Pelvic pain [None]
  - Injury [None]
  - Device issue [None]
  - Device dislocation [None]
  - Abdominal pain lower [None]
  - Abdominal pain [None]

NARRATIVE: CASE EVENT DATE: 201107
